FAERS Safety Report 6895659-3 (Version None)
Quarter: 2010Q3

REPORT INFORMATION
  Report Type: 
  Country: None (occurrence: None)
  Receive Date: 20100730
  Receipt Date: 20100730
  Transmission Date: 20110219
  Serious: No
  Sender: FDA-Public Use
  Company Number: None

PATIENT
  Age: 48 Year
  Sex: Female

DRUGS (5)
  1. AMPYRA [Suspect]
     Indication: MULTIPLE SCLEROSIS
     Dosage: 10MG TABS Q12H ORAL
     Route: 048
  2. FLUOXETINE [Concomitant]
  3. TEMAZEPAM [Concomitant]
  4. ALPRAZOLAM [Concomitant]
  5. OXYBUTYNIN [Concomitant]

REACTIONS (2)
  - APHONIA [None]
  - OROPHARYNGEAL PAIN [None]
